FAERS Safety Report 8861347 (Version 1)
Quarter: 2012Q4

REPORT INFORMATION
  Report Type: Spontaneous
  Country: US (occurrence: None)
  Receive Date: 20121022
  Receipt Date: 20121022
  Transmission Date: 20130627
  Serious: Yes (Other)
  Sender: FDA-Public Use
  Company Number: R-12-046

PATIENT
  Age: 48 Year
  Sex: Male
  Weight: 95.26 kg

DRUGS (4)
  1. ASTHMANEFRIN [Suspect]
     Indication: ASTHMA
     Dates: start: 20120927, end: 20120927
  2. PROAIR INHALER [Concomitant]
  3. DULERA INHALER [Concomitant]
  4. ALBUTEROL SULFATE [Concomitant]

REACTIONS (1)
  - Asthma [None]
